FAERS Safety Report 4512341-8 (Version None)
Quarter: 2004Q4

REPORT INFORMATION
  Report Type: 
  Country: None (occurrence: None)
  Receive Date: 20041129
  Receipt Date: 20041119
  Transmission Date: 20050328
  Serious: Yes (Hospitalization)
  Sender: FDA-Public Use
  Company Number: FR-GLAXOSMITHKLINE-B0358114A

PATIENT
  Age: 90 Year
  Sex: Female
  Weight: 80 kg

DRUGS (6)
  1. AUGMENTIN '125' [Suspect]
     Indication: ILL-DEFINED DISORDER
     Dosage: 1G TWICE PER DAY
     Route: 048
     Dates: start: 20040213, end: 20040214
  2. ROCEPHIN [Suspect]
     Indication: ILL-DEFINED DISORDER
     Dosage: 1G PER DAY
     Route: 042
     Dates: start: 20040215, end: 20040217
  3. PULMICORT [Suspect]
     Route: 055
     Dates: start: 20040213, end: 20040214
  4. LASILIX [Concomitant]
     Dosage: 40MG TWICE PER DAY
     Route: 048
  5. SOLUPRED [Concomitant]
     Dosage: 20MG THREE TIMES PER DAY
     Route: 048
     Dates: end: 20040214
  6. NOLVADEX [Concomitant]
     Dosage: 10MG PER DAY
     Route: 048
     Dates: start: 19990615

REACTIONS (3)
  - COUGH [None]
  - DERMATITIS BULLOUS [None]
  - TOXIC SKIN ERUPTION [None]
